FAERS Safety Report 7603888-6 (Version None)
Quarter: 2011Q3

REPORT INFORMATION
  Report Type: 
  Country: None (occurrence: None)
  Receive Date: 20110712
  Receipt Date: 20110711
  Transmission Date: 20111222
  Serious: Yes (Other)
  Sender: FDA-Public Use
  Company Number: US-PFIZER INC-2011156287

PATIENT
  Sex: Female
  Weight: 43.084 kg

DRUGS (8)
  1. CHANTIX [Suspect]
     Indication: SMOKING CESSATION THERAPY
     Dosage: UNK
     Route: 048
     Dates: start: 20090101
  2. CHANTIX [Suspect]
     Dosage: 1 MG, 2X/DAY
     Dates: start: 20110101, end: 20110101
  3. VITAMIN D [Concomitant]
     Indication: WEIGHT DECREASED
     Dosage: 5000 IU, DAILY
  4. CHANTIX [Suspect]
     Dosage: UNK
     Route: 048
     Dates: start: 20110101
  5. ZINC [Concomitant]
     Indication: WEIGHT DECREASED
     Dosage: UNK
  6. ASCORBIC ACID [Concomitant]
     Indication: WEIGHT DECREASED
     Dosage: UNK
  7. FOLIC ACID [Concomitant]
     Indication: MUSCLE SPASMS
     Dosage: 800 UG, DAILY
  8. QUININE SULFATE [Concomitant]
     Dosage: 320 MG, DAILY

REACTIONS (1)
  - URTICARIA [None]
